FAERS Safety Report 23300742 (Version 1)
Quarter: 2023Q4

REPORT INFORMATION
  Report Type: Spontaneous
  Country: US (occurrence: US)
  Receive Date: 20231215
  Receipt Date: 20231215
  Transmission Date: 20240110
  Serious: No
  Sender: FDA-Public Use
  Company Number: US-Blueprint Medicines Corporation-SP-US-2023-002043

PATIENT

DRUGS (3)
  1. AYVAKIT [Suspect]
     Active Substance: AVAPRITINIB
     Indication: Advanced systemic mastocytosis
     Route: 048
  2. AYVAKIT [Suspect]
     Active Substance: AVAPRITINIB
     Indication: Chronic lymphocytic leukaemia
     Route: 048
  3. ACALABRUTINIB [Concomitant]
     Active Substance: ACALABRUTINIB
     Indication: Product used for unknown indication
     Route: 048

REACTIONS (1)
  - Off label use [Unknown]
